FAERS Safety Report 8986779 (Version 1)
Quarter: 2012Q4

REPORT INFORMATION
  Report Type: 
  Country: IT (occurrence: IT)
  Receive Date: 20121226
  Receipt Date: 20121226
  Transmission Date: 20130627
  Serious: Yes (Hospitalization)
  Sender: FDA-Public Use
  Company Number: IT-ROCHE-1172685

PATIENT
  Age: 24 Year
  Sex: Male

DRUGS (2)
  1. RIVOTRIL [Suspect]
     Indication: INTENTIONAL SELF-INJURY
     Route: 048
     Dates: start: 20121207, end: 20121207
  2. DEPAKIN [Suspect]
     Indication: INTENTIONAL SELF-INJURY
     Route: 048
     Dates: start: 20121207, end: 20121207

REACTIONS (1)
  - Toxicity to various agents [Unknown]
